FAERS Safety Report 14236428 (Version 3)
Quarter: 2018Q1

REPORT INFORMATION
  Report Type: Spontaneous
  Country: US (occurrence: US)
  Receive Date: 20171129
  Receipt Date: 20180212
  Transmission Date: 20180508
  Serious: No
  Sender: FDA-Public Use
  Company Number: US-PFIZER INC-2017509063

PATIENT
  Age: 72 Year
  Sex: Male
  Weight: 78 kg

DRUGS (1)
  1. WATER BACTERIOSTATIC [Suspect]
     Active Substance: WATER
     Indication: INVESTIGATION
     Dosage: 0.5CC
     Dates: start: 20171121, end: 20171121

REACTIONS (2)
  - Intentional product misuse [Unknown]
  - Injection site pain [Recovered/Resolved]

NARRATIVE: CASE EVENT DATE: 20171121
